FAERS Safety Report 7363082-3 (Version None)
Quarter: 2011Q1

REPORT INFORMATION
  Report Type: 
  Country: None (occurrence: None)
  Receive Date: 20110321
  Receipt Date: 20110311
  Transmission Date: 20110831
  Serious: Yes (Other)
  Sender: FDA-Public Use
  Company Number: US-PFIZER INC-2006069815

PATIENT
  Sex: Female

DRUGS (6)
  1. NEURONTIN [Suspect]
     Dosage: UNK
     Route: 065
     Dates: start: 20020505
  2. NEURONTIN [Suspect]
     Dosage: 100 MG, 3X/DAY
     Dates: start: 20020507
  3. NEURONTIN [Suspect]
     Dosage: 300 MG, UNK
     Dates: start: 20021125
  4. NEURONTIN [Suspect]
     Dosage: 100 MG, UNK
     Dates: start: 20020424
  5. NEURONTIN [Suspect]
     Dosage: 300 MG, 2X/DAY
     Dates: start: 20020930
  6. NEURONTIN [Suspect]
     Dosage: 300 MG, 3X/DAY
     Dates: start: 20021024

REACTIONS (2)
  - SUICIDE ATTEMPT [None]
  - INTENTIONAL OVERDOSE [None]
